FAERS Safety Report 6379481-2 (Version None)
Quarter: 2009Q3

REPORT INFORMATION
  Report Type: 
  Country: None (occurrence: None)
  Receive Date: 20090928
  Receipt Date: 20090921
  Transmission Date: 20100115
  Serious: Yes (Hospitalization)
  Sender: FDA-Public Use
  Company Number: B0595076A

PATIENT
  Sex: Female

DRUGS (2)
  1. TYVERB [Suspect]
     Route: 048
  2. CAPECITABINE [Suspect]
     Indication: DRUG USE FOR UNKNOWN INDICATION
     Route: 065

REACTIONS (4)
  - DIARRHOEA [None]
  - DRUG TOXICITY [None]
  - GASTROINTESTINAL DISORDER [None]
  - LIVER DISORDER [None]
